FAERS Safety Report 5109423-9 (Version None)
Quarter: 2006Q3

REPORT INFORMATION
  Report Type: 
  Country: None (occurrence: None)
  Receive Date: 20060918
  Receipt Date: 20060908
  Transmission Date: 20061208
  Serious: Yes (Death, Hospitalization)
  Sender: FDA-Public Use
  Company Number: 2006SP001208

PATIENT
  Age: 70 Year
  Sex: Male
  Weight: 80.1 kg

DRUGS (7)
  1. TEMODAR [Suspect]
     Indication: GLIOBLASTOMA MULTIFORME
     Dosage: 75 MG/M2;QD;PO
     Route: 048
     Dates: start: 20060710, end: 20060803
  2. TEMODAR [Suspect]
  3. TEMODAR [Suspect]
  4. REGULAR INSULIN [Concomitant]
  5. METFORMIN HCL [Concomitant]
  6. DECADRON [Concomitant]
  7. RADIATION THERAPY [Concomitant]

REACTIONS (16)
  - CONFUSIONAL STATE [None]
  - HYPOXIA [None]
  - LUNG INFILTRATION [None]
  - LYMPHOPENIA [None]
  - MENTAL STATUS CHANGES [None]
  - PNEUMONIA [None]
  - PNEUMONITIS [None]
  - PROCEDURAL COMPLICATION [None]
  - PULMONARY EMBOLISM [None]
  - REFUSAL OF TREATMENT BY RELATIVE [None]
  - RESPIRATORY DISTRESS [None]
  - TACHYCARDIA [None]
  - THERAPY NON-RESPONDER [None]
  - THROMBOCYTOPENIA [None]
  - URINARY TRACT INFECTION [None]
  - WHITE BLOOD CELL COUNT DECREASED [None]
